FAERS Safety Report 9858227 (Version 2)
Quarter: 2014Q1

REPORT INFORMATION
  Report Type: Spontaneous
  Country: GR (occurrence: GR)
  Receive Date: 20140131
  Receipt Date: 20140227
  Transmission Date: 20141002
  Serious: Yes (Other)
  Sender: FDA-Public Use
  Company Number: GR-JNJFOC-20140113833

PATIENT
  Age: 56 Year
  Sex: Male
  Weight: 115 kg

DRUGS (2)
  1. STELARA [Suspect]
     Indication: PSORIASIS
     Route: 058
     Dates: start: 20110111, end: 20131126
  2. METHOTREXATE [Concomitant]
     Route: 065
     Dates: start: 20100103

REACTIONS (1)
  - Pneumonia [Recovered/Resolved]
